FAERS Safety Report 8279498-7 (Version None)
Quarter: 2012Q2

REPORT INFORMATION
  Report Type: 
  Country: None (occurrence: None)
  Receive Date: 20120412
  Receipt Date: 20120125
  Transmission Date: 20120825
  Serious: No
  Sender: FDA-Public Use
  Company Number: US-ASTRAZENECA-2012SE05348

PATIENT
  Age: 71 Year
  Sex: Female
  Weight: 68 kg

DRUGS (8)
  1. ZANTAC [Concomitant]
  2. GABAPENTIN [Concomitant]
  3. NEXIUM [Suspect]
     Indication: GASTROOESOPHAGEAL REFLUX DISEASE
     Route: 048
     Dates: start: 20120101
  4. AMLODIPINE [Concomitant]
  5. PROPRANOLOL [Concomitant]
  6. TAGAMET [Concomitant]
  7. LISINOPRIL [Concomitant]
  8. PRILOSEC [Suspect]
     Route: 048

REACTIONS (3)
  - DRUG INEFFECTIVE [None]
  - DYSPEPSIA [None]
  - DRUG DOSE OMISSION [None]
